FAERS Safety Report 9069115 (Version 1)
Quarter: 2013Q1

REPORT INFORMATION
  Report Type: Spontaneous
  Country: US (occurrence: None)
  Receive Date: 20130213
  Receipt Date: 20130213
  Transmission Date: 20140127
  Serious: Yes (Hospitalization)
  Sender: FDA-Public Use
  Company Number: None

PATIENT
  Sex: Male
  Weight: 67.6 kg

DRUGS (3)
  1. CARBOPLATIN [Suspect]
  2. PACLITAXEL (PACLITAXEL) [Suspect]
  3. BEVACIZUMAB [Suspect]

REACTIONS (3)
  - Pancytopenia [None]
  - Myelodysplastic syndrome [None]
  - Haematotoxicity [None]
